FAERS Safety Report 6503147-9 (Version None)
Quarter: 2009Q4

REPORT INFORMATION
  Report Type: 
  Country: None (occurrence: None)
  Receive Date: 20091217
  Receipt Date: 20091202
  Transmission Date: 20100525
  Serious: Yes (Other)
  Sender: FDA-Public Use
  Company Number: US-TYCO HEALTHCARE/MALLINCKRODT-T200800995

PATIENT

DRUGS (34)
  1. OPTIMARK [Suspect]
     Indication: NUCLEAR MAGNETIC RESONANCE IMAGING
     Dosage: 20 ML, SINGLE
     Route: 042
     Dates: start: 20060313, end: 20060313
  2. OPTIMARK [Suspect]
     Dosage: 3 ML, SINGLE
     Route: 042
     Dates: start: 20060319, end: 20060319
  3. OPTIMARK [Suspect]
     Dosage: 20 ML, SINGLE
     Route: 042
     Dates: start: 20060325, end: 20060325
  4. OPTIMARK [Suspect]
     Dosage: 20 ML, SINGLE
     Route: 042
     Dates: start: 20070518, end: 20070518
  5. MAGNEVIST [Suspect]
     Indication: SCAN
     Dosage: 30 ML, SINGLE
     Dates: start: 20020316, end: 20020316
  6. MAGNEVIST [Suspect]
     Dosage: UNK, SINGLE
     Dates: start: 20060319, end: 20060319
  7. MAGNEVIST [Suspect]
     Dosage: UNK, SINGLE
     Dates: start: 20060325, end: 20060325
  8. ALLEGRA [Concomitant]
     Indication: PRURITUS
     Dosage: 180 MG, QD
  9. EVISTA [Concomitant]
     Indication: OSTEOPOROSIS
     Dosage: 60 MG, QD
  10. PHOSLO [Concomitant]
     Indication: BLOOD PHOSPHORUS
     Dosage: 667 MG, BID/ 2-3 TIMES PER DAY
  11. NEURONTIN [Concomitant]
     Indication: LIMB DISCOMFORT
     Dosage: 1200 MG, BID
  12. LASIX [Concomitant]
     Indication: FLUID RETENTION
     Dosage: 160 MG, BID
  13. LASIX [Concomitant]
     Indication: HYPERTENSION
  14. LOPRESSOR [Concomitant]
     Indication: HYPERTENSION
     Dosage: 25 MG, BID
  15. SINGULAIR [Concomitant]
     Indication: SINUS DISORDER
     Dosage: 10 MG, QD
  16. DARVOCET-N 100 [Concomitant]
     Indication: PAIN
     Dosage: 100 MG, EVERY SIX HOURS
  17. NOVOLOG MIX 70/30 [Concomitant]
     Indication: DIABETES MELLITUS
     Dosage: 10 IU, QD
  18. LEVEMIR [Concomitant]
     Indication: DIABETES MELLITUS
     Dosage: 10 IU, QD
  19. ADVAIR DISKUS 100/50 [Concomitant]
     Indication: ASTHMA
     Dosage: 250/50 TWO PUFFS PER DAY
  20. TOPSYN [Concomitant]
     Indication: RASH
     Dosage: AS NEEDED
     Route: 061
  21. TOPSYN [Concomitant]
     Indication: PRURITUS
  22. UREA [Concomitant]
     Indication: DRY SKIN
     Dosage: UNK, QD
  23. HYALURONATE SODIUM [Concomitant]
     Indication: DRY SKIN
     Dosage: UNK, QD
  24. XANAX [Concomitant]
     Indication: ANXIETY
     Dosage: .5 MG, BID
  25. ATARAX [Concomitant]
     Indication: PRURITUS
     Dosage: 25 MG, QD
  26. INSULIN                            /00646001/ [Concomitant]
     Dosage: 70/50 15 UNITS IN THE AM AND 20 UNITS IN THE PM
  27. LASIX [Concomitant]
     Dosage: 40 MG, QD
     Route: 048
  28. METOPROLOL TARTRATE [Concomitant]
     Dosage: 20 MG, QD
     Route: 048
  29. METHYLDOPA [Concomitant]
     Dosage: 250 MG, BID
  30. TYLENOL W/ CODEINE NO. 3 [Concomitant]
     Dosage: UNK
  31. EFEXOR XR                          /01233802/ [Concomitant]
     Dosage: 50 MG, QD
  32. ISOSORBIDE [Concomitant]
     Indication: ANGINA PECTORIS
     Dosage: 30 MG, QD
  33. COLCHICINE [Concomitant]
     Dosage: ONE TABLET EVERY 6 HOURS PRN
  34. SYNTHROID [Concomitant]
     Dosage: 0.1 MG, QD

REACTIONS (35)
  - ABSCESS [None]
  - ARTHRALGIA [None]
  - BRADYCARDIA [None]
  - BRONCHITIS [None]
  - CELLULITIS [None]
  - CHONDROCALCINOSIS [None]
  - DERMATITIS CONTACT [None]
  - DIASTOLIC DYSFUNCTION [None]
  - DRUG PRESCRIBING ERROR [None]
  - DRY SKIN [None]
  - DYSPNOEA [None]
  - HYPOCALCAEMIA [None]
  - HYPOKALAEMIA [None]
  - HYPOPARATHYROIDISM [None]
  - LEFT VENTRICULAR HYPERTROPHY [None]
  - MITRAL VALVE INCOMPETENCE [None]
  - MITRAL VALVE STENOSIS [None]
  - MUSCULOSKELETAL CHEST PAIN [None]
  - MYOCARDIAL INFARCTION [None]
  - NEPHROGENIC SYSTEMIC FIBROSIS [None]
  - NEUROPATHY PERIPHERAL [None]
  - ONYCHOMYCOSIS [None]
  - OSTEOARTHRITIS [None]
  - OSTEOPOROSIS [None]
  - PATELLOFEMORAL PAIN SYNDROME [None]
  - PHARYNGITIS [None]
  - PRURITUS [None]
  - RENAL FAILURE CHRONIC [None]
  - RHINITIS ALLERGIC [None]
  - ROAD TRAFFIC ACCIDENT [None]
  - SINUSITIS [None]
  - SLEEP APNOEA SYNDROME [None]
  - SYNOVIAL CYST [None]
  - TRICUSPID VALVE INCOMPETENCE [None]
  - VENOUS INSUFFICIENCY [None]
